FAERS Safety Report 11063874 (Version 2)
Quarter: 2017Q1

REPORT INFORMATION
  Report Type: Report from Study
  Country: US (occurrence: US)
  Receive Date: 20150424
  Receipt Date: 20170103
  Transmission Date: 20170428
  Serious: Yes (Hospitalization, Other)
  Sender: FDA-Public Use
  Company Number: US-PURDUE-USA-2015-0122829

PATIENT
  Age: 46 Year
  Sex: Male

DRUGS (3)
  1. OXYCODONE HYDROCHLORIDE. [Suspect]
     Active Substance: OXYCODONE HYDROCHLORIDE
     Indication: THYROID DISORDER
     Dosage: 80 MG, 2 TABLETS BID
     Route: 048
     Dates: start: 20150213
  2. OXYCODONE HYDROCHLORIDE. [Suspect]
     Active Substance: OXYCODONE HYDROCHLORIDE
     Indication: PAIN
     Dosage: 40 MG, 2 TABLETS BID
     Route: 048
     Dates: start: 20150213
  3. OXYCODONE HYDROCHLORIDE. [Suspect]
     Active Substance: OXYCODONE HYDROCHLORIDE
     Dosage: UNK
     Route: 048
     Dates: start: 2007

REACTIONS (5)
  - Migraine [Unknown]
  - Accident [Unknown]
  - Vocal cord operation [Unknown]
  - Pharyngeal operation [Unknown]
  - Glossectomy [Unknown]

NARRATIVE: CASE EVENT DATE: 20150327
